FAERS Safety Report 14109904 (Version 1)
Quarter: 2017Q4

REPORT INFORMATION
  Report Type: Report from Study
  Country: SG (occurrence: SG)
  Receive Date: 20171020
  Receipt Date: 20171020
  Transmission Date: 20180321
  Serious: Yes (Death, Other)
  Sender: FDA-Public Use
  Company Number: SG-ROCHE-2010980

PATIENT

DRUGS (2)
  1. ALTEPLASE. [Suspect]
     Active Substance: ALTEPLASE
     Indication: ISCHAEMIC STROKE
     Dosage: 0.9 MG/KG; 10% GIVEN AS A BOLUS
     Route: 040
  2. ALTEPLASE. [Suspect]
     Active Substance: ALTEPLASE
     Dosage: 0.9 MG/KG; 90% INFUSED OVER 1 HOUR
     Route: 041

REACTIONS (6)
  - Haemorrhage intracranial [Unknown]
  - Thrombosis [Unknown]
  - Haematoma [Unknown]
  - Embolism [Unknown]
  - Death [Fatal]
  - Cerebral haematoma [Unknown]
